FAERS Safety Report 23505247 (Version 1)
Quarter: 2024Q1

REPORT INFORMATION
  Report Type: Spontaneous
  Country: US (occurrence: US)
  Receive Date: 20240209
  Receipt Date: 20240209
  Transmission Date: 20240410
  Serious: Yes (Hospitalization)
  Sender: FDA-Public Use
  Company Number: US-JNJFOC-20240205685

PATIENT
  Sex: Male

DRUGS (1)
  1. ERLEADA [Suspect]
     Active Substance: APALUTAMIDE
     Indication: Product used for unknown indication
     Route: 048

REACTIONS (5)
  - Radiotherapy [Recovered/Resolved]
  - Dysphagia [Recovered/Resolved]
  - Blood calcium decreased [Recovered/Resolved]
  - Dysphonia [Recovered/Resolved]
  - Product dose omission issue [Unknown]
